FAERS Safety Report 12119351 (Version 1)
Quarter: 2016Q1

REPORT INFORMATION
  Report Type: Spontaneous
  Country: US (occurrence: None)
  Receive Date: 20160225
  Receipt Date: 20160225
  Transmission Date: 20160526
  Serious: Yes (Other)
  Sender: FDA-Public Use
  Company Number: None

PATIENT
  Age: 58 Year
  Sex: Female

DRUGS (1)
  1. IBRANCE [Suspect]
     Active Substance: PALBOCICLIB
     Indication: BREAST CANCER
     Dosage: 1 CAPSULE QD ORAL
     Route: 048
     Dates: start: 20160218, end: 20160223

REACTIONS (2)
  - Faeces discoloured [None]
  - Vomiting [None]

NARRATIVE: CASE EVENT DATE: 20160219
